FAERS Safety Report 22140405 (Version 1)
Quarter: 2023Q1

REPORT INFORMATION
  Report Type: Report from Study
  Country: BR (occurrence: BR)
  Receive Date: 20230327
  Receipt Date: 20230327
  Transmission Date: 20230418
  Serious: Yes (Other)
  Sender: FDA-Public Use
  Company Number: BR-GLAXOSMITHKLINE-BR2023GSK042927

PATIENT

DRUGS (7)
  1. LAMIVUDINE [Suspect]
     Active Substance: LAMIVUDINE
     Indication: Perinatal HIV infection
     Dosage: UNK
  2. TENOFOVIR DISOPROXIL FUMARATE [Suspect]
     Active Substance: TENOFOVIR DISOPROXIL FUMARATE
     Indication: Perinatal HIV infection
     Dosage: UNK
  3. MARAVIROC [Suspect]
     Active Substance: MARAVIROC
     Indication: Perinatal HIV infection
     Dosage: UNK
  4. RALTEGRAVIR [Suspect]
     Active Substance: RALTEGRAVIR
     Indication: Perinatal HIV infection
     Dosage: UNK
  5. DARUNAVIR\RITONAVIR [Suspect]
     Active Substance: DARUNAVIR\RITONAVIR
     Indication: Perinatal HIV infection
     Dosage: UNK
  6. ENFUVIRTIDE [Suspect]
     Active Substance: ENFUVIRTIDE
     Indication: Perinatal HIV infection
     Dosage: UNK
  7. ZIDOVUDINE [Suspect]
     Active Substance: ZIDOVUDINE
     Indication: Antiviral prophylaxis
     Dosage: UNK

REACTIONS (4)
  - Pathogen resistance [Unknown]
  - Viral mutation identified [Unknown]
  - Virologic failure [Unknown]
  - Exposure during pregnancy [Unknown]
